FAERS Safety Report 5762634-1 (Version None)
Quarter: 2008Q2

REPORT INFORMATION
  Report Type: 
  Country: None (occurrence: None)
  Receive Date: 20080609
  Receipt Date: 20080521
  Transmission Date: 20081010
  Serious: No
  Sender: FDA-Public Use
  Company Number: US-BAYER-200824152NA

PATIENT

DRUGS (1)
  1. MAGNEVIST [Suspect]
     Dates: start: 20070901, end: 20070901

REACTIONS (4)
  - DIZZINESS [None]
  - FLUSHING [None]
  - NAUSEA [None]
  - VOMITING [None]
